FAERS Safety Report 21076326 (Version 4)
Quarter: 2023Q1

REPORT INFORMATION
  Report Type: Spontaneous
  Country: US (occurrence: US)
  Receive Date: 20220713
  Receipt Date: 20230309
  Transmission Date: 20230418
  Serious: No
  Sender: FDA-Public Use
  Company Number: US-MYOVANT SCIENCES GMBH-2022MYSCI0400065

PATIENT
  Sex: Male

DRUGS (7)
  1. ORGOVYX [Suspect]
     Active Substance: RELUGOLIX
     Indication: Prostate cancer
     Dosage: 360 MILLIGRAM, ONE TIME DOSE
     Route: 048
     Dates: start: 202109, end: 202109
  2. ORGOVYX [Suspect]
     Active Substance: RELUGOLIX
     Dosage: 120 MILLIGRAM, QD
     Route: 048
     Dates: start: 202109
  3. ORGOVYX [Suspect]
     Active Substance: RELUGOLIX
     Dosage: UNK
  4. ORGOVYX [Suspect]
     Active Substance: RELUGOLIX
     Dosage: UNK
  5. FOLIC ACID [Concomitant]
     Active Substance: FOLIC ACID
     Indication: Product used for unknown indication
     Dosage: UNK
     Route: 065
  6. ABACAVIR [Concomitant]
     Active Substance: ABACAVIR
     Indication: HIV infection
     Dosage: UNK
     Route: 065
  7. ISENTRESS [Concomitant]
     Active Substance: RALTEGRAVIR POTASSIUM
     Indication: HIV infection
     Dosage: UNK
     Route: 065

REACTIONS (11)
  - Skin wrinkling [Not Recovered/Not Resolved]
  - Hot flush [Not Recovered/Not Resolved]
  - Fatigue [Not Recovered/Not Resolved]
  - Asthenia [Unknown]
  - Depression [Unknown]
  - Joint noise [Unknown]
  - Joint swelling [Unknown]
  - Nocturia [Not Recovered/Not Resolved]
  - Incontinence [Unknown]
  - Insurance issue [Recovered/Resolved]
  - Intentional dose omission [Recovered/Resolved]

NARRATIVE: CASE EVENT DATE: 20220101
